FAERS Safety Report 9830179 (Version 12)
Quarter: 2016Q2

REPORT INFORMATION
  Report Type: Report from Study
  Country: US (occurrence: US)
  Receive Date: 20140120
  Receipt Date: 20160428
  Transmission Date: 20160815
  Serious: Yes (Hospitalization, Other)
  Sender: FDA-Public Use
  Company Number: US-SA-2014SA004002

PATIENT
  Age: 60 Year
  Sex: Female
  Weight: 57.6 kg

DRUGS (7)
  1. LIPITOR [Concomitant]
     Active Substance: ATORVASTATIN CALCIUM
     Indication: BLOOD CHOLESTEROL
  2. AUBAGIO [Suspect]
     Active Substance: TERIFLUNOMIDE
     Indication: RELAPSING-REMITTING MULTIPLE SCLEROSIS
     Route: 048
     Dates: start: 201407, end: 201601
  3. AUBAGIO [Suspect]
     Active Substance: TERIFLUNOMIDE
     Indication: RELAPSING-REMITTING MULTIPLE SCLEROSIS
     Route: 048
     Dates: start: 2016
  4. RISEDRONATE SODIUM. [Concomitant]
     Active Substance: RISEDRONATE SODIUM
     Indication: OSTEOPOROSIS
     Dates: start: 20140106
  5. DIAZEPAM. [Concomitant]
     Active Substance: DIAZEPAM
     Indication: MYALGIA
  6. PERCOCET [Concomitant]
     Active Substance: ACETAMINOPHEN\OXYCODONE HYDROCHLORIDE
     Indication: PAIN
  7. AUBAGIO [Suspect]
     Active Substance: TERIFLUNOMIDE
     Indication: RELAPSING-REMITTING MULTIPLE SCLEROSIS
     Route: 048
     Dates: start: 20131212

REACTIONS (23)
  - Stress [Unknown]
  - Foot fracture [Unknown]
  - Memory impairment [Unknown]
  - Myalgia [Recovered/Resolved]
  - Hypoaesthesia [Recovered/Resolved]
  - Paraesthesia [Recovered/Resolved]
  - Paraesthesia [Unknown]
  - Hypertension [Recovered/Resolved]
  - Unevaluable event [Unknown]
  - Respiratory disorder [Unknown]
  - Back pain [Not Recovered/Not Resolved]
  - Visual impairment [Unknown]
  - Alopecia [Recovered/Resolved]
  - Hypersensitivity [Unknown]
  - Strabismus [Unknown]
  - Headache [Recovered/Resolved]
  - Foot fracture [Not Recovered/Not Resolved]
  - Nerve compression [Not Recovered/Not Resolved]
  - Back injury [Unknown]
  - Nausea [Unknown]
  - Drug dose omission [Unknown]
  - Back pain [Unknown]
  - Sleep disorder [Unknown]

NARRATIVE: CASE EVENT DATE: 201312
